FAERS Safety Report 7707618-9 (Version None)
Quarter: 2011Q3

REPORT INFORMATION
  Report Type: 
  Country: None (occurrence: None)
  Receive Date: 20110824
  Receipt Date: 20110816
  Transmission Date: 20111222
  Serious: Yes (Other)
  Sender: FDA-Public Use
  Company Number: AU-JNJFOC-20110807013

PATIENT
  Sex: Male
  Weight: 127 kg

DRUGS (2)
  1. XARELTO [Suspect]
     Indication: THROMBOSIS PROPHYLAXIS
     Route: 048
     Dates: start: 20110808, end: 20110815
  2. ALPHAPRIL [Concomitant]

REACTIONS (1)
  - PULMONARY EMBOLISM [None]
